FAERS Safety Report 22319991 (Version 1)
Quarter: 2023Q2

REPORT INFORMATION
  Report Type: Spontaneous
  Country: US (occurrence: None)
  Receive Date: 20230512
  Receipt Date: 20230512
  Transmission Date: 20230721
  Serious: Yes (Death)
  Sender: FDA-Public Use
  Company Number: None

PATIENT
  Age: 91 Year
  Sex: Male

DRUGS (17)
  1. ELIGARD [Suspect]
     Active Substance: LEUPROLIDE ACETATE
     Indication: Prostate cancer
     Dosage: OTHER FREQUENCY : EVERY 6 MONTHS;?
     Route: 058
     Dates: start: 20220706, end: 20230116
  2. AZOPT SUS OP [Concomitant]
  3. BICALUTAMIDE [Concomitant]
  4. CENTRUM TAB SILVER [Concomitant]
  5. COMBIGAN SOL [Concomitant]
  6. EYLEA [Concomitant]
  7. LUMIGAN SOL [Concomitant]
  8. METHAMINE GRA [Concomitant]
  9. METHIMAZOLE [Concomitant]
     Active Substance: METHIMAZOLE
  10. MIRALAX POW 3350 NF [Concomitant]
  11. NIACIN [Concomitant]
     Active Substance: NIACIN
  12. PANTOPRAZOLE [Concomitant]
     Active Substance: PANTOPRAZOLE
  13. PREDNISONE [Concomitant]
     Active Substance: PREDNISONE
  14. PRESERVATION CAP LUTEIN [Concomitant]
  15. ROCKLATAN DRO [Concomitant]
  16. SOTALOL HCL [Concomitant]
  17. TRIMETHOPRIM [Concomitant]

REACTIONS (1)
  - Death [None]

NARRATIVE: CASE EVENT DATE: 20230116
